FAERS Safety Report 16479028 (Version 1)
Quarter: 2019Q2

REPORT INFORMATION
  Report Type: Report from Study
  Country: US (occurrence: US)
  Receive Date: 20190626
  Receipt Date: 20190626
  Transmission Date: 20190711
  Serious: Yes (Other)
  Sender: FDA-Public Use
  Company Number: US-GILEAD-2019-0415292

PATIENT
  Age: 34 Year
  Sex: Female
  Weight: 47.62 kg

DRUGS (3)
  1. TADALAFIL. [Suspect]
     Active Substance: TADALAFIL
     Indication: PRODUCT USED FOR UNKNOWN INDICATION
     Dosage: UNK
     Route: 065
  2. AMBRISENTAN [Suspect]
     Active Substance: AMBRISENTAN
     Indication: PRODUCT USED FOR UNKNOWN INDICATION
     Dosage: UNK
     Route: 065
  3. TYVASO [Suspect]
     Active Substance: TREPROSTINIL
     Indication: PRODUCT USED FOR UNKNOWN INDICATION
     Dosage: 3-9 BREATHS
     Dates: start: 20160224

REACTIONS (7)
  - Tachycardia [Unknown]
  - Skin disorder [Not Recovered/Not Resolved]
  - Syncope [Unknown]
  - Abdominal discomfort [Unknown]
  - Palpitations [Unknown]
  - Eczema [Not Recovered/Not Resolved]
  - Weight decreased [Unknown]
